FAERS Safety Report 15170081 (Version 2)
Quarter: 2019Q4

REPORT INFORMATION
  Report Type: Spontaneous
  Country: US (occurrence: US)
  Receive Date: 20180720
  Receipt Date: 20191205
  Transmission Date: 20200122
  Serious: No
  Sender: FDA-Public Use
  Company Number: US-PFIZER INC-2018292029

PATIENT
  Age: 61 Year
  Sex: Male

DRUGS (4)
  1. PEPCID [Suspect]
     Active Substance: FAMOTIDINE
     Dosage: UNK
  2. GOLD (198 AU) COLLOIDAL [Suspect]
     Active Substance: GOLD AU-198
     Dosage: UNK
  3. METHOTREXATE SODIUM. [Suspect]
     Active Substance: METHOTREXATE SODIUM
     Dosage: UNK
  4. OTEZLA [Suspect]
     Active Substance: APREMILAST
     Dosage: UNK

REACTIONS (2)
  - Drug hypersensitivity [Unknown]
  - Gastritis [Unknown]
